FAERS Safety Report 5062922-0 (Version None)
Quarter: 2006Q3

REPORT INFORMATION
  Report Type: 
  Country: None (occurrence: None)
  Receive Date: 20060724
  Receipt Date: 20060704
  Transmission Date: 20061208
  Serious: Yes (Other)
  Sender: FDA-Public Use
  Company Number: SE200604000624

PATIENT
  Sex: Female

DRUGS (6)
  1. FORTEO [Suspect]
     Indication: OSTEOPOROSIS
     Dosage: 20 UG, DAILY (1/D), SUBCUTANEOUS
     Route: 058
     Dates: start: 20050315
  2. FORTEO PEN (FORTEO PEN) [Concomitant]
  3. COZAAR COMP (HYDROCHLOROTHIAZIDE, LOSARTAN POTASSIUM) [Concomitant]
  4. OXYCONTIN [Concomitant]
  5. KALCIPOS (CALCIUM CARBONATE) [Concomitant]
  6. PULMICORT [Concomitant]

REACTIONS (2)
  - MICTURITION URGENCY [None]
  - RENAL COLIC [None]
